FAERS Safety Report 13862395 (Version 2)
Quarter: 2017Q4

REPORT INFORMATION
  Report Type: Report from Study
  Country: None (occurrence: US)
  Receive Date: 20170813
  Receipt Date: 20171117
  Transmission Date: 20180320
  Serious: Yes (Other)
  Sender: FDA-Public Use
  Company Number: US-ABBVIE-17K-163-2064645-00

PATIENT
  Age: 15 Year
  Sex: Male

DRUGS (9)
  1. HUMIRA [Suspect]
     Active Substance: ADALIMUMAB
     Indication: CROHN^S DISEASE
     Route: 058
  2. LAMOTRIGINE. [Concomitant]
     Active Substance: LAMOTRIGINE
     Indication: EPILEPSY
  3. APRISO [Concomitant]
     Active Substance: MESALAMINE
     Indication: CROHN^S DISEASE
  4. POTASSIUM CHLORIDE. [Concomitant]
     Active Substance: POTASSIUM CHLORIDE
     Indication: BLOOD POTASSIUM DECREASED
  5. HUMIRA [Suspect]
     Active Substance: ADALIMUMAB
     Route: 058
  6. FLUVOXAMINE [Concomitant]
     Active Substance: FLUVOXAMINE
     Indication: OBSESSIVE-COMPULSIVE DISORDER
  7. PREDNISONE. [Concomitant]
     Active Substance: PREDNISONE
     Indication: CROHN^S DISEASE
  8. OMEPRAZOLE. [Concomitant]
     Active Substance: OMEPRAZOLE
     Indication: DYSPEPSIA
  9. SEROQUEL [Concomitant]
     Active Substance: QUETIAPINE FUMARATE
     Indication: PRODUCT USED FOR UNKNOWN INDICATION

REACTIONS (5)
  - Seizure [Recovered/Resolved]
  - Wrong technique in product usage process [Unknown]
  - Incorrect dose administered [Unknown]
  - Seizure [Recovered/Resolved]
  - Tremor [Unknown]

NARRATIVE: CASE EVENT DATE: 20170803
